FAERS Safety Report 14793139 (Version 1)
Quarter: 2018Q2

REPORT INFORMATION
  Report Type: Spontaneous
  Country: FR (occurrence: FR)
  Receive Date: 20180423
  Receipt Date: 20180423
  Transmission Date: 20180711
  Serious: Yes (Hospitalization)
  Sender: FDA-Public Use
  Company Number: FR-JNJFOC-20180426846

PATIENT
  Age: 81 Year
  Sex: Male

DRUGS (2)
  1. DUROGESIC [Suspect]
     Active Substance: FENTANYL
     Indication: SPINAL COMPRESSION FRACTURE
     Route: 062
     Dates: end: 20180405
  2. ACTISKENAN [Concomitant]
     Active Substance: MORPHINE SULFATE
     Indication: SPINAL COMPRESSION FRACTURE
     Route: 048
     Dates: end: 20180405

REACTIONS (2)
  - Bradypnoea [Recovered/Resolved]
  - Hypoxia [Recovered/Resolved]

NARRATIVE: CASE EVENT DATE: 20180405
